FAERS Safety Report 10560028 (Version 5)
Quarter: 2015Q1

REPORT INFORMATION
  Report Type: Report from Study
  Country: DE (occurrence: DE)
  Receive Date: 20141103
  Receipt Date: 20150226
  Transmission Date: 20150720
  Serious: Yes (Other)
  Sender: FDA-Public Use
  Company Number: DE-BEH-2013039123

PATIENT
  Age: 49 Year
  Sex: Female
  Weight: 126 kg

DRUGS (24)
  1. PRIVIGEN [Suspect]
     Active Substance: HUMAN IMMUNOGLOBULIN G
     Route: 042
     Dates: start: 20130514, end: 20130514
  2. PRIVIGEN [Suspect]
     Active Substance: HUMAN IMMUNOGLOBULIN G
     Route: 042
     Dates: start: 20130513, end: 20130513
  3. PRIVIGEN [Suspect]
     Active Substance: HUMAN IMMUNOGLOBULIN G
     Route: 042
     Dates: start: 20130514, end: 20130514
  4. MICARDIS [Concomitant]
     Active Substance: TELMISARTAN
  5. PRIVIGEN [Suspect]
     Active Substance: HUMAN IMMUNOGLOBULIN G
     Route: 042
     Dates: start: 20130513, end: 20130513
  6. CORIFEO [Concomitant]
  7. ANTIDEPRESSANTS [Concomitant]
     Active Substance: UNSPECIFIED INGREDIENT
  8. NOVAMINSULFON [Concomitant]
     Active Substance: METAMIZOLE
  9. PRIVIGEN [Suspect]
     Active Substance: HUMAN IMMUNOGLOBULIN G
     Dosage: IN TOTAL
     Route: 042
     Dates: start: 20130514, end: 20130514
  10. PRIVIGEN [Suspect]
     Active Substance: HUMAN IMMUNOGLOBULIN G
     Route: 042
     Dates: start: 20130514, end: 20130514
  11. MARCUMAR [Concomitant]
     Active Substance: PHENPROCOUMON
  12. PANTOPRAZOLE [Concomitant]
     Active Substance: PANTOPRAZOLE SODIUM
  13. ZANTAC [Concomitant]
     Active Substance: RANITIDINE HYDROCHLORIDE
  14. GLUCOCORTICOIDS [Concomitant]
     Active Substance: UNSPECIFIED INGREDIENT
  15. TORASEMIDE [Concomitant]
     Active Substance: TORSEMIDE
  16. BERODUAL SPRAY [Concomitant]
  17. SOLU DECORTIN H REPORTED AS SDH [Concomitant]
     Route: 042
     Dates: start: 20130514, end: 20130514
  18. PRIVIGEN [Suspect]
     Active Substance: HUMAN IMMUNOGLOBULIN G
     Dosage: IN TOTAL
     Route: 042
     Dates: start: 20130513, end: 20130513
  19. PRIVIGEN [Suspect]
     Active Substance: HUMAN IMMUNOGLOBULIN G
     Indication: INFECTION
     Route: 042
     Dates: start: 20130513, end: 20130513
  20. NEBIVOLOL [Concomitant]
     Active Substance: NEBIVOLOL
  21. HYDROMORPHON RET. [Concomitant]
  22. SOLU DECORTIN H REPORTED AS SDH [Concomitant]
     Indication: PREMEDICATION
     Route: 042
     Dates: start: 20130513, end: 20130513
  23. CETIRIZIN [Concomitant]
  24. SERETIDEN [Concomitant]

REACTIONS (5)
  - Pruritus [Recovered/Resolved]
  - Nausea [Recovered/Resolved]
  - Headache [Recovered/Resolved]
  - Vomiting [Recovered/Resolved]
  - Hyperpyrexia [Recovered/Resolved]

NARRATIVE: CASE EVENT DATE: 20130513
